FAERS Safety Report 10249531 (Version 1)
Quarter: 2014Q2

REPORT INFORMATION
  Report Type: Spontaneous
  Country: US (occurrence: US)
  Receive Date: 20140620
  Receipt Date: 20140620
  Transmission Date: 20141212
  Serious: No
  Sender: FDA-Public Use
  Company Number: US-PFIZER INC-2014168918

PATIENT
  Age: 59 Year
  Sex: Female
  Weight: 70.3 kg

DRUGS (2)
  1. LIPITOR [Suspect]
     Indication: HYPERLIPIDAEMIA
     Dosage: UNK, DAILY
     Dates: start: 2008
  2. DIOVAN [Concomitant]
     Indication: HYPERTENSION
     Dosage: UNK, DAILY
     Dates: start: 2008

REACTIONS (1)
  - Drug ineffective [Unknown]
